FAERS Safety Report 20491141 (Version 2)
Quarter: 2022Q1

REPORT INFORMATION
  Report Type: Spontaneous
  Country: IT (occurrence: None)
  Receive Date: 20220218
  Receipt Date: 20220309
  Transmission Date: 20220423
  Serious: Yes (Hospitalization)
  Sender: FDA-Public Use
  Company Number: 2022A075865

PATIENT
  Age: 74 Year
  Sex: Male

DRUGS (2)
  1. ONDEXXYA [Suspect]
     Active Substance: ANDEXANET ALFA
     Indication: Cerebral haemorrhage
     Dosage: 400.0MG ONCE/SINGLE ADMINISTRATION
     Route: 065
     Dates: start: 20220204, end: 20220204
  2. ONDEXXYA [Suspect]
     Active Substance: ANDEXANET ALFA
     Indication: Cerebral haemorrhage
     Dosage: 480.0MG ONCE/SINGLE ADMINISTRATION
     Route: 065
     Dates: start: 20220204, end: 20220204

REACTIONS (1)
  - Cerebral ischaemia [Recovering/Resolving]

NARRATIVE: CASE EVENT DATE: 20220206
